FAERS Safety Report 6714494-X (Version None)
Quarter: 2010Q2

REPORT INFORMATION
  Report Type: 
  Country: None (occurrence: None)
  Receive Date: 20100506
  Receipt Date: 20100427
  Transmission Date: 20101027
  Serious: Yes (Hospitalization, Disabling)
  Sender: FDA-Public Use
  Company Number: CA-AMGEN-QUU408754

PATIENT
  Age: 56 Year
  Sex: Female
  Weight: 74.9 kg

DRUGS (1)
  1. ENBREL [Suspect]
     Indication: DRUG USE FOR UNKNOWN INDICATION
     Route: 058

REACTIONS (4)
  - CARDIOMEGALY [None]
  - ENDOCARDITIS [None]
  - MITRAL VALVE DISEASE [None]
  - SEPSIS [None]
